FAERS Safety Report 17762490 (Version 1)
Quarter: 2020Q2

REPORT INFORMATION
  Report Type: Spontaneous
  Country: US (occurrence: US)
  Receive Date: 20200508
  Receipt Date: 20200508
  Transmission Date: 20200714
  Serious: Yes (Other)
  Sender: FDA-Public Use
  Company Number: US-PFIZER INC-2020175755

PATIENT
  Sex: Male

DRUGS (3)
  1. METHOTREXATE SODIUM. [Suspect]
     Active Substance: METHOTREXATE SODIUM
     Dosage: UNK (135 G/M2 (CUMULATIVE METHOTREXATE DOSES))
  2. METHOTREXATE SODIUM. [Suspect]
     Active Substance: METHOTREXATE SODIUM
     Dosage: UNK (20 G/M2 (CUMULATIVE METHOTREXATE DOSES))
  3. METHOTREXATE SODIUM. [Suspect]
     Active Substance: METHOTREXATE SODIUM
     Dosage: UNK (80 G/M2 (CUMULATIVE METHOTREXATE DOSES))

REACTIONS (2)
  - Metaphyseal corner fracture [Unknown]
  - Osteopenia [Unknown]
